FAERS Safety Report 10243100 (Version 1)
Quarter: 2014Q2

REPORT INFORMATION
  Report Type: Spontaneous
  Country: US (occurrence: US)
  Receive Date: 20140618
  Receipt Date: 20140618
  Transmission Date: 20141212
  Serious: Yes (Other)
  Sender: FDA-Public Use
  Company Number: US-AMGEN-USASP2014044195

PATIENT
  Sex: 0

DRUGS (4)
  1. XGEVA [Suspect]
     Indication: BONE DISORDER
     Route: 065
  2. ZOLADEX                            /00732101/ [Concomitant]
  3. CASODEX [Concomitant]
  4. PREDNISONE [Concomitant]

REACTIONS (5)
  - Neoplasm malignant [Unknown]
  - Metastases to bone [Unknown]
  - Prostatic specific antigen abnormal [Unknown]
  - Peripheral swelling [Unknown]
  - Lymphadenopathy [Unknown]
